FAERS Safety Report 8298973-2 (Version None)
Quarter: 2012Q2

REPORT INFORMATION
  Report Type: 
  Country: None (occurrence: None)
  Receive Date: 20120419
  Receipt Date: 20120412
  Transmission Date: 20120825
  Serious: Yes (Hospitalization, Disabling, Other)
  Sender: FDA-Public Use
  Company Number: US-MERCK-1202USA02461

PATIENT
  Age: 55 Year
  Sex: Female

DRUGS (5)
  1. FOSAMAX [Suspect]
     Route: 048
  2. ZOVIRAX [Concomitant]
     Indication: ORAL HERPES
     Route: 065
     Dates: start: 19970101, end: 20060101
  3. FOSAMAX [Suspect]
     Route: 048
  4. FOSAMAX [Suspect]
     Route: 048
  5. FOSAMAX [Suspect]
     Indication: OSTEOPOROSIS
     Route: 048
     Dates: start: 19980202, end: 20060312

REACTIONS (4)
  - FEMUR FRACTURE [None]
  - FALL [None]
  - SQUAMOUS CELL CARCINOMA OF SKIN [None]
  - LOW TURNOVER OSTEOPATHY [None]
